FAERS Safety Report 8031645-8 (Version None)
Quarter: 2012Q1

REPORT INFORMATION
  Report Type: 
  Country: None (occurrence: None)
  Receive Date: 20120109
  Receipt Date: 20111229
  Transmission Date: 20120608
  Serious: Yes (Other)
  Sender: FDA-Public Use
  Company Number: US-ELI_LILLY_AND_COMPANY-US201201001231

PATIENT
  Sex: Female
  Weight: 48.073 kg

DRUGS (5)
  1. SIMVASTATIN [Concomitant]
  2. PLAVIX [Concomitant]
  3. FORTEO [Suspect]
     Indication: OSTEOPOROSIS
     Dosage: 20 UG, QD
     Dates: start: 20111101, end: 20111201
  4. DONEPEZIL HCL [Concomitant]
  5. LORAZEPAM [Concomitant]

REACTIONS (6)
  - INSOMNIA [None]
  - CEREBROVASCULAR ACCIDENT [None]
  - CONFUSIONAL STATE [None]
  - CONVULSION [None]
  - SLEEP DISORDER [None]
  - BLOOD PRESSURE INCREASED [None]
